FAERS Safety Report 18776466 (Version 2)
Quarter: 2021Q1

REPORT INFORMATION
  Report Type: Spontaneous
  Country: US (occurrence: US)
  Receive Date: 20210122
  Receipt Date: 20210202
  Transmission Date: 20210419
  Serious: Yes (Hospitalization, Other)
  Sender: FDA-Public Use
  Company Number: US-ELI_LILLY_AND_COMPANY-US202101005694

PATIENT
  Age: 70 Year
  Sex: Female

DRUGS (3)
  1. TOUJEO [Concomitant]
     Active Substance: INSULIN GLARGINE
     Indication: PRODUCT USED FOR UNKNOWN INDICATION
     Dosage: UNK, UNKNOWN
     Route: 065
  2. HUMALOG [Suspect]
     Active Substance: INSULIN LISPRO
     Dosage: UNK UNK, UNKNOWN
     Route: 065
  3. HUMALOG [Suspect]
     Active Substance: INSULIN LISPRO
     Indication: PRODUCT USED FOR UNKNOWN INDICATION
     Dosage: UNK UNK, UNKNOWN
     Route: 065

REACTIONS (9)
  - Blood potassium increased [Unknown]
  - Spinal fracture [Unknown]
  - Gait disturbance [Unknown]
  - Fall [Unknown]
  - Tremor [Not Recovered/Not Resolved]
  - Calcinosis [Unknown]
  - Fall [Unknown]
  - Nervous system disorder [Unknown]
  - Benign breast neoplasm [Unknown]

NARRATIVE: CASE EVENT DATE: 202002
